FAERS Safety Report 9218280 (Version 2)
Quarter: 2013Q4

REPORT INFORMATION
  Report Type: Spontaneous
  Country: JP (occurrence: JP)
  Receive Date: 20130409
  Receipt Date: 20131217
  Transmission Date: 20140711
  Serious: Yes (Other)
  Sender: FDA-Public Use
  Company Number: JP-009507513-1304JPN002871

PATIENT
  Age: 58 Year
  Sex: Male

DRUGS (2)
  1. TEMODAL [Suspect]
     Indication: GLIOMA
     Dosage: TOTAL: 23750MG/M2; DAILY DOSE UNKNOWN
  2. TEMODAL [Suspect]
     Indication: ANAPLASTIC ASTROCYTOMA

REACTIONS (2)
  - Acute myeloid leukaemia [Unknown]
  - Myelodysplastic syndrome [Unknown]
